FAERS Safety Report 4770674-4 (Version None)
Quarter: 2005Q3

REPORT INFORMATION
  Report Type: 
  Country: None (occurrence: None)
  Receive Date: 20050915
  Receipt Date: 20050907
  Transmission Date: 20060218
  Serious: Yes (Death, Hospitalization)
  Sender: FDA-Public Use
  Company Number: US-JNJFOC-20050902266

PATIENT
  Age: 72 Year
  Sex: Female

DRUGS (5)
  1. ACETAMINOPHEN [Suspect]
     Route: 048
  2. ACETAMINOPHEN [Suspect]
     Indication: SUICIDE ATTEMPT
     Route: 048
  3. CHLORDIAZEPOXIDE [Suspect]
     Indication: SUICIDE ATTEMPT
  4. BENZODIAZEPINE [Suspect]
     Indication: SUICIDE ATTEMPT
  5. MARIJUANA [Suspect]
     Indication: SUICIDE ATTEMPT
     Route: 055

REACTIONS (7)
  - ACUTE MYOCARDIAL INFARCTION [None]
  - COMA [None]
  - COMPLETED SUICIDE [None]
  - DRUG SCREEN POSITIVE [None]
  - GRAND MAL CONVULSION [None]
  - HEPATIC FAILURE [None]
  - INTENTIONAL MISUSE [None]
